FAERS Safety Report 9709635 (Version 1)
Quarter: 2013Q4

REPORT INFORMATION
  Report Type: Spontaneous
  Country: US (occurrence: US)
  Receive Date: 20131126
  Receipt Date: 20131126
  Transmission Date: 20140711
  Serious: No
  Sender: FDA-Public Use
  Company Number: US-009507513-1311USA006154

PATIENT
  Age: 18 Year
  Sex: Female

DRUGS (1)
  1. IMPLANON [Suspect]
     Indication: CONTRACEPTION
     Dosage: 1 ROD, UNK
     Dates: start: 2010

REACTIONS (3)
  - Implant site pain [Not Recovered/Not Resolved]
  - Weight increased [Not Recovered/Not Resolved]
  - Medical device complication [Not Recovered/Not Resolved]
